FAERS Safety Report 6424566-5 (Version None)
Quarter: 2009Q4

REPORT INFORMATION
  Report Type: 
  Country: None (occurrence: None)
  Receive Date: 20091103
  Receipt Date: 20091020
  Transmission Date: 20100525
  Serious: Yes (Other)
  Sender: FDA-Public Use
  Company Number: PHHY2009GB45792

PATIENT
  Sex: Male

DRUGS (1)
  1. CLOZARIL [Suspect]
     Indication: SCHIZOPHRENIA
     Dosage: UNK
     Dates: start: 20050613

REACTIONS (5)
  - BODY TEMPERATURE INCREASED [None]
  - ELECTROCARDIOGRAM T WAVE AMPLITUDE INCREASED [None]
  - HEART RATE INCREASED [None]
  - LOWER RESPIRATORY TRACT INFECTION [None]
  - MYOCARDIAL ISCHAEMIA [None]
